FAERS Safety Report 5247675-5 (Version None)
Quarter: 2007Q1

REPORT INFORMATION
  Report Type: 
  Country: None (occurrence: None)
  Receive Date: 20070227
  Receipt Date: 20070222
  Transmission Date: 20070707
  Serious: Yes (Death, Hospitalization)
  Sender: FDA-Public Use
  Company Number: US-AVENTIS-200711174US

PATIENT
  Sex: Male

DRUGS (14)
  1. LOVENOX [Suspect]
     Dates: start: 20070210, end: 20070212
  2. CYCLOPHOSPHAMIDE [Concomitant]
  3. PREDNISONE [Concomitant]
  4. DILTIAZEM [Concomitant]
  5. ZOCOR [Concomitant]
     Dosage: DOSE: UNKNOWN
  6. ATENOLOL [Concomitant]
     Dosage: DOSE: UNKNOWN
  7. CALCIUM [Concomitant]
     Dosage: DOSE: UNKNOWN
  8. FOSAMAX [Concomitant]
     Dosage: DOSE: UNKNOWN
  9. LANTUS [Concomitant]
  10. NOVOLOG [Concomitant]
     Dosage: DOSE: SLIDING SCALE WITH MEALS
  11. ANTIBIOTICS [Concomitant]
  12. RANITIDINE [Concomitant]
     Dosage: DOSE: UNKNOWN
  13. COUMADIN [Concomitant]
  14. NYSTATIN [Concomitant]
     Dosage: DOSE: UNKNOWN
     Route: 002

REACTIONS (2)
  - BACTERAEMIA [None]
  - INFECTIVE THROMBOSIS [None]
